FAERS Safety Report 9967904 (Version 1)
Quarter: 2014Q1

REPORT INFORMATION
  Report Type: Report from Study
  Country: US (occurrence: US)
  Receive Date: 20140306
  Receipt Date: 20140306
  Transmission Date: 20141002
  Serious: No
  Sender: FDA-Public Use
  Company Number: US-ABBVIE-13P-163-1147573-00

PATIENT
  Age: 18 Year
  Sex: Female

DRUGS (3)
  1. HUMIRA [Suspect]
     Indication: ANKYLOSING SPONDYLITIS
     Route: 058
  2. HUMIRA [Suspect]
     Indication: JUVENILE IDIOPATHIC ARTHRITIS
  3. NABUMETONE [Concomitant]
     Indication: ARTHRITIS
     Route: 048

REACTIONS (2)
  - Wrong technique in drug usage process [Unknown]
  - Arthralgia [Recovered/Resolved]
